FAERS Safety Report 6122376-X (Version None)
Quarter: 2009Q1

REPORT INFORMATION
  Report Type: 
  Country: None (occurrence: None)
  Receive Date: 20090318
  Receipt Date: 20090210
  Transmission Date: 20090719
  Serious: No
  Sender: FDA-Public Use
  Company Number: US-ASTRAZENECA-2009UW03826

PATIENT
  Age: 47 Year
  Sex: Female
  Weight: 82.1 kg

DRUGS (3)
  1. SYMBICORT [Suspect]
     Indication: ASTHMA
     Dosage: 80/4.5 TWO PUFFS TWICE DAILY
     Route: 055
     Dates: start: 20090121, end: 20090128
  2. PROZAC [Concomitant]
  3. NEXIUM [Concomitant]
     Route: 048

REACTIONS (4)
  - ASTHENIA [None]
  - HEADACHE [None]
  - HYPERTENSION [None]
  - INSOMNIA [None]
